FAERS Safety Report 22778348 (Version 3)
Quarter: 2023Q4

REPORT INFORMATION
  Report Type: Spontaneous
  Country: US (occurrence: US)
  Receive Date: 20230802
  Receipt Date: 20231003
  Transmission Date: 20240109
  Serious: Yes (Other)
  Sender: FDA-Public Use
  Company Number: US-PFIZER INC-PV202300054920

PATIENT
  Age: 87 Year
  Sex: Male

DRUGS (2)
  1. RETACRIT [Suspect]
     Active Substance: EPOETIN ALFA-EPBX
     Indication: Anaemia
     Dosage: 40000 UNIT/ML, EVERY WEEK X 4
     Route: 058
  2. RETACRIT [Suspect]
     Active Substance: EPOETIN ALFA-EPBX
     Indication: Myelodysplastic syndrome

REACTIONS (16)
  - Blood ethanol increased [Unknown]
  - Off label use [Unknown]
  - Fall [Unknown]
  - White blood cell count decreased [Unknown]
  - Red blood cell count decreased [Unknown]
  - Neutrophil count increased [Unknown]
  - Mean cell volume increased [Unknown]
  - Mean cell haemoglobin concentration decreased [Unknown]
  - Haematocrit decreased [Unknown]
  - Lymphocyte count decreased [Unknown]
  - Monocyte count decreased [Unknown]
  - Platelet count increased [Unknown]
  - Aspartate aminotransferase decreased [Unknown]
  - Blood sodium decreased [Unknown]
  - Globulins increased [Unknown]
  - Albumin globulin ratio decreased [Unknown]

NARRATIVE: CASE EVENT DATE: 20221120
